FAERS Safety Report 8587045-5 (Version None)
Quarter: 2012Q3

REPORT INFORMATION
  Report Type: 
  Country: None (occurrence: None)
  Receive Date: 20120810
  Receipt Date: 20120803
  Transmission Date: 20120928
  Serious: Yes (Hospitalization)
  Sender: FDA-Public Use
  Company Number: JP-VERTEX PHARMACEUTICALS INC.-AE-2012-011837

PATIENT
  Age: 61 Year
  Sex: Female

DRUGS (5)
  1. RIBAVIRIN [Concomitant]
     Route: 048
     Dates: start: 20120611, end: 20120618
  2. TELAVIC (TELAPREVIR) [Suspect]
     Indication: HEPATITIS C
     Route: 048
     Dates: start: 20120611, end: 20120618
  3. ALLOPURINOL [Concomitant]
     Route: 048
     Dates: start: 20120613, end: 20120623
  4. OLOPATADINE HCL [Concomitant]
     Route: 048
     Dates: start: 20120611, end: 20120623
  5. PEGINTERFERON ALFA-2B [Concomitant]
     Route: 058
     Dates: start: 20120611, end: 20120618

REACTIONS (1)
  - RENAL IMPAIRMENT [None]
